FAERS Safety Report 23218645 (Version 1)
Quarter: 2023Q4

REPORT INFORMATION
  Report Type: Report from Study
  Country: US (occurrence: US)
  Receive Date: 20231122
  Receipt Date: 20231122
  Transmission Date: 20240109
  Serious: Yes (Death)
  Sender: FDA-Public Use
  Company Number: US-ABBVIE-5506592

PATIENT
  Sex: Male

DRUGS (3)
  1. VENCLEXTA [Suspect]
     Active Substance: VENETOCLAX
     Indication: Myelodysplastic syndrome
     Dosage: TAKE 1 TABLET BY MOUTH ONCE DAILY WITH FOOD AND A FULL GLASS OF WATER FOR 14 DAYS IN A MONTH, THE...
     Route: 048
  2. VENCLEXTA [Suspect]
     Active Substance: VENETOCLAX
     Indication: Myelodysplastic syndrome
     Dosage: TAKE 1 TABLET BY MOUTH ONCE DAILY WITH FOOD AND A FULL GLASS OF WATER FOR 14 DAYS IN A MONTH, THE...
     Route: 048
  3. VENCLEXTA [Suspect]
     Active Substance: VENETOCLAX
     Indication: Myelodysplastic syndrome
     Dosage: TAKE 1 TABLET BY MOUTH ONCE DAILY WITH FOOD AND A FULL GLASS OF WATER FOR 14 DAYS IN A MONTH, THE...
     Route: 048

REACTIONS (1)
  - Death [Fatal]
